FAERS Safety Report 17120955 (Version 1)
Quarter: 2019Q4

REPORT INFORMATION
  Report Type: Spontaneous
  Country: US (occurrence: US)
  Receive Date: 20191206
  Receipt Date: 20191206
  Transmission Date: 20200122
  Serious: No
  Sender: FDA-Public Use
  Company Number: US-UCBSA-2017028178

PATIENT
  Age: 48 Year
  Sex: Female

DRUGS (1)
  1. VIMPAT [Suspect]
     Active Substance: LACOSAMIDE
     Indication: PRODUCT USED FOR UNKNOWN INDICATION
     Dosage: 600 MG DAILY
     Dates: start: 2012, end: 201610

REACTIONS (2)
  - Alopecia [Recovering/Resolving]
  - Off label use [Unknown]
